FAERS Safety Report 5317965-6 (Version None)
Quarter: 2007Q1

REPORT INFORMATION
  Report Type: 
  Country: None (occurrence: None)
  Receive Date: 20070201
  Receipt Date: 20060907
  Transmission Date: 20070707
  Serious: Yes (Other)
  Sender: FDA-Public Use
  Company Number: BDI-008617

PATIENT
  Sex: Female

DRUGS (4)
  1. CHOLETEC [Suspect]
     Indication: ABDOMINAL PAIN
     Dosage: IV
     Route: 042
     Dates: start: 20060907, end: 20060907
  2. CHOLETEC [Suspect]
     Indication: SCAN
     Dosage: IV
     Route: 042
     Dates: start: 20060907, end: 20060907
  3. PERCOCET [Concomitant]
  4. KINEVAC [Concomitant]

REACTIONS (2)
  - HYPERTENSION [None]
  - URTICARIA [None]
